FAERS Safety Report 6127044-6 (Version None)
Quarter: 2009Q1

REPORT INFORMATION
  Report Type: 
  Country: None (occurrence: None)
  Receive Date: 20090320
  Receipt Date: 20090311
  Transmission Date: 20090719
  Serious: Yes (Hospitalization)
  Sender: FDA-Public Use
  Company Number: US-B.I. PHARMACEUTICALS,INC./RIDGEFIELD-2009-BP-02975BP

PATIENT
  Sex: Female
  Weight: 68.03 kg

DRUGS (15)
  1. MOBIC [Suspect]
  2. SELEGILINE HCL [Suspect]
     Indication: DEPRESSION
     Route: 062
     Dates: start: 20070801
  3. LITHIUM [Suspect]
  4. COZAAR [Concomitant]
  5. AMLODIPINE [Concomitant]
  6. SYNTHROID [Concomitant]
  7. ZOFRAN [Concomitant]
  8. VITAMIN E [Concomitant]
  9. NEURONTIN [Concomitant]
  10. TYLENOL [Concomitant]
  11. NEXIUM [Concomitant]
  12. SINGULAIR [Concomitant]
  13. TAGAMET [Concomitant]
  14. VALTREX [Concomitant]
  15. PHENERGAN [Concomitant]

REACTIONS (11)
  - ABDOMINAL DISTENSION [None]
  - APPLICATION SITE RASH [None]
  - GASTRITIS [None]
  - GLOSSODYNIA [None]
  - NAUSEA [None]
  - OESOPHAGITIS [None]
  - PRURITUS [None]
  - RASH [None]
  - RENAL FAILURE [None]
  - SUICIDAL IDEATION [None]
  - URTICARIA [None]
